FAERS Safety Report 9648981 (Version 1)
Quarter: 2013Q4

REPORT INFORMATION
  Report Type: Spontaneous
  Country: IT (occurrence: IT)
  Receive Date: 20131028
  Receipt Date: 20131028
  Transmission Date: 20140711
  Serious: Yes (Life-Threatening)
  Sender: FDA-Public Use
  Company Number: IT-ACTAVIS-2013-19317

PATIENT
  Age: 54 Year
  Sex: Female

DRUGS (2)
  1. NIMESULIDE [Suspect]
     Indication: NECK PAIN
     Dosage: 1 DF, DAILY
     Route: 048
     Dates: start: 20130703, end: 20131003
  2. IBUPROFEN [Suspect]
     Indication: OSTEOARTHRITIS
     Dosage: 1 DF, DAILY
     Route: 048
     Dates: start: 20130703, end: 20131003

REACTIONS (4)
  - Anaemia [Recovering/Resolving]
  - Metabolic acidosis [Recovering/Resolving]
  - Gastroduodenal ulcer [Recovering/Resolving]
  - Bone marrow failure [Recovering/Resolving]
